FAERS Safety Report 14664307 (Version 1)
Quarter: 2018Q1

REPORT INFORMATION
  Report Type: Spontaneous
  Country: US (occurrence: US)
  Receive Date: 20180319
  Receipt Date: 20180319
  Transmission Date: 20180509
  Serious: Yes (Disabling)
  Sender: FDA-Public Use
  Company Number: None

PATIENT
  Age: 46 Year
  Sex: Female

DRUGS (1)
  1. LAMICTAL [Suspect]
     Active Substance: LAMOTRIGINE

REACTIONS (14)
  - Fatigue [None]
  - Derealisation [None]
  - Panic attack [None]
  - Withdrawal syndrome [None]
  - Myalgia [None]
  - Anxiety [None]
  - Photophobia [None]
  - Tooth disorder [None]
  - Migraine [None]
  - Nausea [None]
  - Movement disorder [None]
  - Flat affect [None]
  - Depersonalisation/derealisation disorder [None]
  - Paraesthesia [None]
